FAERS Safety Report 8028747 (Version 3)
Quarter: 2015Q1

REPORT INFORMATION
  Report Type: Report from Study
  Country: US (occurrence: US)
  Receive Date: 20110711
  Receipt Date: 20150309
  Transmission Date: 20150721
  Serious: Yes (Other)
  Sender: FDA-Public Use
  Company Number: US-ELI_LILLY_AND_COMPANY-US201107000231

PATIENT
  Sex: Male

DRUGS (3)
  1. SOMATROPIN [Suspect]
     Active Substance: SOMATROPIN
     Dosage: 0.6 MG, QD
  2. SOMATROPIN [Suspect]
     Active Substance: SOMATROPIN
     Dosage: 0.6 MG, QD
     Route: 065
  3. SOMATROPIN [Suspect]
     Active Substance: SOMATROPIN
     Indication: PRODUCT USED FOR UNKNOWN INDICATION
     Dosage: 0.4 MG, QD

REACTIONS (6)
  - Memory impairment [Unknown]
  - Drug dose omission [Unknown]
  - Incorrect dose administered [Unknown]
  - Arthritis [Unknown]
  - Joint injury [Unknown]
  - Asthenia [Recovering/Resolving]
